FAERS Safety Report 25498483 (Version 2)
Quarter: 2025Q3

REPORT INFORMATION
  Report Type: Report from Study
  Country: US (occurrence: US)
  Receive Date: 20250701
  Receipt Date: 20250827
  Transmission Date: 20251021
  Serious: Yes (Hospitalization)
  Sender: ACADIA PHARMACEUTICALS
  Company Number: US-ACADIA PHARMACEUTICALS INC.-ACA-2025-PIM-007703

PATIENT
  Age: 83 Year
  Sex: Female

DRUGS (16)
  1. NUPLAZID [Suspect]
     Active Substance: PIMAVANSERIN TARTRATE
     Indication: Affective disorder
     Dosage: 34 MILLIGRAM, QD
     Route: 048
     Dates: start: 20240807
  2. NUPLAZID [Suspect]
     Active Substance: PIMAVANSERIN TARTRATE
     Indication: Delusional disorder, unspecified type
  3. NUPLAZID [Suspect]
     Active Substance: PIMAVANSERIN TARTRATE
     Indication: Hallucination
  4. NUPLAZID [Suspect]
     Active Substance: PIMAVANSERIN TARTRATE
     Indication: Dementia with Lewy bodies
  5. CARVEDILOL [Concomitant]
     Active Substance: CARVEDILOL
  6. SEROQUEL [Concomitant]
     Active Substance: QUETIAPINE FUMARATE
  7. MINERALS\VITAMINS [Concomitant]
     Active Substance: MINERALS\VITAMINS
  8. MIRTAZAPINE [Concomitant]
     Active Substance: MIRTAZAPINE
  9. ASPIRIN [Concomitant]
     Active Substance: ASPIRIN
  10. NIFEDIPINE [Concomitant]
     Active Substance: NIFEDIPINE
  11. PANTOPRAZOLE [Concomitant]
     Active Substance: PANTOPRAZOLE
  12. METOPROLOL [Concomitant]
     Active Substance: METOPROLOL
  13. PRAVASTATIN [Concomitant]
     Active Substance: PRAVASTATIN
  14. HYOSCYAMINE [HYOSCYAMINE SULFATE] [Concomitant]
  15. OMEPRAZOLE [Concomitant]
     Active Substance: OMEPRAZOLE
  16. POTASSIUM [Concomitant]
     Active Substance: POTASSIUM

REACTIONS (8)
  - Tooth infection [Unknown]
  - Abscess oral [Unknown]
  - Muscular weakness [Recovered/Resolved]
  - Food refusal [Recovered/Resolved]
  - Confusional state [Recovered/Resolved]
  - Fasting [Recovered/Resolved]
  - Product use in unapproved indication [Unknown]
  - Product dose omission issue [Recovered/Resolved]

NARRATIVE: CASE EVENT DATE: 20250601
